FAERS Safety Report 19150822 (Version 1)
Quarter: 2021Q2

REPORT INFORMATION
  Report Type: Spontaneous
  Country: FR (occurrence: FR)
  Receive Date: 20210419
  Receipt Date: 20210419
  Transmission Date: 20210717
  Serious: Yes (Other)
  Sender: FDA-Public Use
  Company Number: FR-JNJFOC-20210424836

PATIENT
  Age: 73 Year
  Sex: Female
  Weight: 68 kg

DRUGS (7)
  1. LEVOTHYROX [Concomitant]
     Active Substance: LEVOTHYROXINE
  2. PIROXICAM. [Concomitant]
     Active Substance: PIROXICAM
  3. APROVEL [Concomitant]
     Active Substance: IRBESARTAN
  4. IPERTEN [Concomitant]
     Active Substance: MANIDIPINE
  5. SIMPONI [Suspect]
     Active Substance: GOLIMUMAB
     Indication: SPONDYLITIS
     Route: 058
     Dates: start: 201910
  6. OMEPRAZOLE. [Concomitant]
     Active Substance: OMEPRAZOLE
  7. UVEDOSE [Concomitant]
     Active Substance: CHOLECALCIFEROL

REACTIONS (4)
  - Cholestasis [Recovered/Resolved]
  - Hepatic cytolysis [Recovered/Resolved]
  - Off label use [Unknown]
  - Product use issue [Unknown]

NARRATIVE: CASE EVENT DATE: 201910
